FAERS Safety Report 8837747 (Version 1)
Quarter: 2012Q4

REPORT INFORMATION
  Report Type: 
  Country: HR (occurrence: HR)
  Receive Date: 20121012
  Receipt Date: 20121012
  Transmission Date: 20130627
  Serious: Yes (Life-Threatening, Other)
  Sender: FDA-Public Use
  Company Number: PHHY2012HR089208

PATIENT
  Sex: Female

DRUGS (5)
  1. ZOLPIDEM TARTRATE [Suspect]
     Dosage: 10 mg
     Route: 048
  2. LEPONEX [Interacting]
     Indication: PSYCHOTIC DISORDER
     Dosage: 25 mg
     Route: 048
     Dates: start: 2010
  3. PROMAZINE HYDROCHLORIDE [Interacting]
     Indication: PSYCHOTIC DISORDER
     Dosage: 25 mg, BID
     Route: 048
  4. ZYPREXA VELOTAB [Interacting]
     Dosage: 10 mg, BID
     Route: 048
  5. GLUFORMIN [Concomitant]
     Dosage: 850 mg, QD

REACTIONS (5)
  - Serotonin syndrome [Unknown]
  - Mental status changes [Unknown]
  - Neuromyopathy [Unknown]
  - Agitation [Unknown]
  - Drug interaction [Unknown]
